FAERS Safety Report 9441489 (Version 1)
Quarter: 2013Q3

REPORT INFORMATION
  Report Type: Report from Study
  Country: US (occurrence: US)
  Receive Date: 20130805
  Receipt Date: 20130805
  Transmission Date: 20140515
  Serious: Yes (Hospitalization)
  Sender: FDA-Public Use
  Company Number: US-ABBOTT-13P-163-1126622-00

PATIENT
  Age: 37 Year
  Sex: Female
  Weight: 42.22 kg

DRUGS (6)
  1. HUMIRA [Suspect]
     Indication: COLITIS ULCERATIVE
     Dates: start: 20130627, end: 20130627
  2. HUMIRA [Suspect]
     Dates: start: 20130711, end: 20130711
  3. HUMIRA [Suspect]
  4. VANCOMYCIN [Concomitant]
     Indication: CLOSTRIDIUM DIFFICILE INFECTION
  5. PREDNISONE [Concomitant]
     Indication: COLITIS ULCERATIVE
  6. PAXIL [Concomitant]
     Indication: PRODUCT USED FOR UNKNOWN INDICATION

REACTIONS (3)
  - Haematochezia [Not Recovered/Not Resolved]
  - Diarrhoea [Not Recovered/Not Resolved]
  - Colitis ulcerative [Not Recovered/Not Resolved]
